FAERS Safety Report 6102137-8 (Version None)
Quarter: 2009Q1

REPORT INFORMATION
  Report Type: 
  Country: None (occurrence: None)
  Receive Date: 20090304
  Receipt Date: 20081027
  Transmission Date: 20090719
  Serious: Yes (Hospitalization)
  Sender: FDA-Public Use
  Company Number: JP-MERCK-0810USA02384

PATIENT
  Age: 88 Year
  Sex: Male
  Weight: 90 kg

DRUGS (6)
  1. ELAVIL [Suspect]
     Indication: DEPRESSION
     Route: 048
     Dates: start: 20080601, end: 20080929
  2. ELAVIL [Suspect]
     Route: 048
     Dates: start: 20040401, end: 20040801
  3. PEPCID [Suspect]
     Indication: GASTRITIS
     Route: 048
  4. SELBEX [Concomitant]
     Indication: GASTRITIS
     Route: 048
  5. VASOTEC [Suspect]
     Indication: HYPERTENSION
     Route: 048
  6. ALLOPURINOL [Suspect]
     Indication: HYPERURICAEMIA
     Route: 048

REACTIONS (2)
  - BLOOD CREATINE PHOSPHOKINASE INCREASED [None]
  - RHABDOMYOLYSIS [None]
